FAERS Safety Report 24246886 (Version 2)
Quarter: 2024Q3

REPORT INFORMATION
  Report Type: Spontaneous
  Country: US (occurrence: US)
  Receive Date: 20240826
  Receipt Date: 20240926
  Transmission Date: 20241016
  Serious: Yes (Other)
  Sender: AUROBINDO
  Company Number: US-AUROBINDO-AUR-APL-2024-040969

PATIENT
  Age: 53 Year
  Sex: Female

DRUGS (10)
  1. PREDNISONE [Suspect]
     Active Substance: PREDNISONE
     Indication: Product used for unknown indication
     Dosage: 60 MILLIGRAM (TAPERED)
     Route: 065
  2. PREDNISONE [Suspect]
     Active Substance: PREDNISONE
     Dosage: 30 MILLIGRAM, DAILY
     Route: 065
  3. PREDNISONE [Suspect]
     Active Substance: PREDNISONE
     Dosage: 15 MILLIGRAM
     Route: 065
  4. TRIAMCINOLONE [Suspect]
     Active Substance: TRIAMCINOLONE
     Indication: Granuloma
     Dosage: UNK (10 TO 30 MG/CC FOR APPROXIMATELY 2 WEEKS)
     Route: 065
  5. HYALURONIDASE [Suspect]
     Active Substance: HYALURONIDASE\HYALURONIDASE (HUMAN RECOMBINANT)
     Indication: Granuloma
     Dosage: UNK
     Route: 065
  6. ASCORBIC ACID [Concomitant]
     Active Substance: ASCORBIC ACID
     Indication: Granuloma
     Dosage: UNK
     Route: 065
  7. HYALURONIC ACID [Concomitant]
     Active Substance: HYALURONIC ACID
     Indication: Granuloma
     Dosage: UNK
     Route: 065
  8. DOXYCYCLINE [Concomitant]
     Active Substance: DOXYCYCLINE\DOXYCYCLINE HYCLATE
     Indication: Product used for unknown indication
     Dosage: 100 MILLIGRAM, TWO TIMES A DAY (100 MG BID FOR APPROXIMATELY 2 WEEKS)
     Route: 065
  9. METHOTREXATE [Concomitant]
     Active Substance: METHOTREXATE
     Indication: Product used for unknown indication
     Dosage: 20 MILLIGRAM, EVERY WEEK
     Route: 065
  10. FOLIC ACID [Concomitant]
     Active Substance: FOLIC ACID
     Indication: Product used for unknown indication
     Dosage: UNK
     Route: 065

REACTIONS (2)
  - Drug ineffective [Unknown]
  - Rebound effect [Unknown]
